FAERS Safety Report 25713018 (Version 2)
Quarter: 2025Q4

REPORT INFORMATION
  Report Type: Report from Study
  Country: CA (occurrence: CA)
  Receive Date: 20250821
  Receipt Date: 20251003
  Transmission Date: 20260117
  Serious: Yes (Hospitalization, Other)
  Sender: ABBVIE
  Company Number: CA-ABBVIE-6181453

PATIENT
  Age: 84 Year
  Sex: Male

DRUGS (1)
  1. LUPRON [Suspect]
     Active Substance: LEUPROLIDE ACETATE
     Indication: Prostate cancer
     Dosage: FORM STRENGTH:30 MG, DOSE FORM: PRE-FILLED SYRINGE
     Route: 030
     Dates: start: 20221124

REACTIONS (9)
  - Metastases to bone [Unknown]
  - Urinary tract infection [Unknown]
  - Hospitalisation [Unknown]
  - Blood urine present [Unknown]
  - Prostatic specific antigen abnormal [Unknown]
  - Prostatic haemorrhage [Unknown]
  - Chromaturia [Unknown]
  - Immobile [Unknown]
  - Pain [Unknown]

NARRATIVE: CASE EVENT DATE: 20250901
